FAERS Safety Report 4302613-4 (Version None)
Quarter: 2004Q1

REPORT INFORMATION
  Report Type: 
  Country: None (occurrence: None)
  Receive Date: 20040224
  Receipt Date: 20040123
  Transmission Date: 20041129
  Serious: No
  Sender: FDA-Public Use
  Company Number: US-BRISTOL-MYERS SQUIBB COMPANY-12485926

PATIENT
  Age: 73 Year
  Sex: Male
  Weight: 100 kg

DRUGS (4)
  1. EXELDERM CREAM [Suspect]
     Indication: RASH
     Dosage: DOSE-SMALL AMOUNT
     Route: 061
     Dates: start: 20031201
  2. VITAMIN CAP [Concomitant]
     Route: 048
  3. GLUCOSAMINE [Concomitant]
     Route: 048
  4. MOTRIN [Concomitant]
     Indication: HIP ARTHROPLASTY
     Route: 048

REACTIONS (3)
  - DRUG INEFFECTIVE [None]
  - ERYTHEMA [None]
  - PRURITUS [None]
